FAERS Safety Report 20721783 (Version 1)
Quarter: 2022Q2

REPORT INFORMATION
  Report Type: Spontaneous
  Country: US (occurrence: US)
  Receive Date: 20220418
  Receipt Date: 20220418
  Transmission Date: 20220721
  Serious: No
  Sender: FDA-Public Use
  Company Number: US-TAKEDA-2022TUS025725

PATIENT
  Sex: Male
  Weight: 24 kg

DRUGS (1)
  1. VYVANSE [Suspect]
     Active Substance: LISDEXAMFETAMINE DIMESYLATE
     Indication: Attention deficit hyperactivity disorder
     Dosage: 20 MILLIGRAM
     Route: 065

REACTIONS (6)
  - Gastroenteritis viral [Unknown]
  - Malaise [Unknown]
  - Body temperature abnormal [Unknown]
  - Adverse event [Unknown]
  - Therapy interrupted [Unknown]
  - Nausea [Unknown]
